FAERS Safety Report 17777259 (Version 2)
Quarter: 2020Q3

REPORT INFORMATION
  Report Type: Spontaneous
  Country: US (occurrence: US)
  Receive Date: 20200513
  Receipt Date: 20200702
  Transmission Date: 20201102
  Serious: No
  Sender: FDA-Public Use
  Company Number: US-AMNEAL PHARMACEUTICALS-2020-AMRX-00370

PATIENT
  Age: 46 Year
  Sex: Female

DRUGS (1)
  1. ELURYNG [Suspect]
     Active Substance: ETHINYL ESTRADIOL\ETONOGESTREL
     Indication: CONTRACEPTION
     Dosage: 0.120 MG/ 0.015MG IN 1 DAY (1 FOR 3 WEEKS THEN 1 WEEK OUT)
     Route: 067
     Dates: start: 20191228, end: 20200109

REACTIONS (4)
  - Vaginal haemorrhage [Recovered/Resolved]
  - Product substitution issue [Unknown]
  - Uterine spasm [Recovered/Resolved]
  - Headache [Recovered/Resolved]

NARRATIVE: CASE EVENT DATE: 20191228
